FAERS Safety Report 8490952-5 (Version None)
Quarter: 2012Q3

REPORT INFORMATION
  Report Type: 
  Country: None (occurrence: None)
  Receive Date: 20120706
  Receipt Date: 20120629
  Transmission Date: 20120928
  Serious: Yes (Other)
  Sender: FDA-Public Use
  Company Number: US-BAYER-2012-066700

PATIENT
  Age: 34 Year
  Sex: Female

DRUGS (1)
  1. MIRENA [Suspect]
     Indication: CONTRACEPTION
     Dosage: 20 MCG/24HR, CONT
     Route: 015
     Dates: start: 20090701

REACTIONS (5)
  - MENSTRUATION DELAYED [None]
  - HAEMORRHAGE IN PREGNANCY [None]
  - DEVICE DISLOCATION [None]
  - PREGNANCY WITH CONTRACEPTIVE DEVICE [None]
  - CERVIX DISORDER [None]
